FAERS Safety Report 24153065 (Version 1)
Quarter: 2024Q3

REPORT INFORMATION
  Report Type: Spontaneous
  Country: US (occurrence: US)
  Receive Date: 20240730
  Receipt Date: 20240730
  Transmission Date: 20241017
  Serious: Yes (Other)
  Sender: FRESENIUS KABI
  Company Number: US-FreseniusKabi-FK202411661

PATIENT
  Age: 71 Year
  Sex: Female

DRUGS (2)
  1. METHYLPREDNISOLONE [Suspect]
     Active Substance: METHYLPREDNISOLONE
     Indication: Vasculitis
     Dosage: HIGH DOSE
  2. INSULIN NOS [Suspect]
     Active Substance: INSULIN NOS
     Indication: Diabetic ketoacidosis
     Dosage: DOSE-17 UNITS

REACTIONS (2)
  - Diabetic ketoacidosis [Unknown]
  - Ventricular tachycardia [Recovered/Resolved]
